FAERS Safety Report 10520534 (Version 2)
Quarter: 2014Q4

REPORT INFORMATION
  Report Type: Spontaneous
  Country: US (occurrence: US)
  Receive Date: 20141015
  Receipt Date: 20141128
  Transmission Date: 20150528
  Serious: Yes (Other)
  Sender: FDA-Public Use
  Company Number: US-ASTRAZENECA-2014SE76573

PATIENT
  Sex: Female
  Weight: 65.8 kg

DRUGS (1)
  1. SEROQUEL XR [Suspect]
     Active Substance: QUETIAPINE FUMARATE
     Indication: BIPOLAR DISORDER
     Route: 048
     Dates: start: 201410

REACTIONS (17)
  - Hypersomnia [Unknown]
  - Muscle spasms [Not Recovered/Not Resolved]
  - Dry mouth [Unknown]
  - Loss of consciousness [Unknown]
  - Disturbance in attention [Not Recovered/Not Resolved]
  - Injury [Unknown]
  - Head injury [Unknown]
  - Musculoskeletal chest pain [Recovering/Resolving]
  - Contusion [Recovering/Resolving]
  - Mood altered [Unknown]
  - Skeletal injury [Unknown]
  - Fall [Unknown]
  - Speech disorder [Unknown]
  - Thinking abnormal [Unknown]
  - Dysarthria [Unknown]
  - Sleep disorder due to general medical condition, insomnia type [Unknown]
  - Intentional product misuse [Unknown]
